FAERS Safety Report 5772325-9 (Version None)
Quarter: 2008Q2

REPORT INFORMATION
  Report Type: 
  Country: None (occurrence: None)
  Receive Date: 20080613
  Receipt Date: 20080521
  Transmission Date: 20081010
  Serious: Yes (Other)
  Sender: FDA-Public Use
  Company Number: CH-ROCHE-568950

PATIENT
  Age: 35 Year
  Sex: Male

DRUGS (12)
  1. MIRCERA [Suspect]
     Route: 065
     Dates: start: 20080101
  2. ROACCUTAN [Concomitant]
     Route: 048
  3. DANCOR [Concomitant]
     Route: 048
  4. BELOC-ZOK [Concomitant]
     Route: 048
  5. FELODIPINE [Concomitant]
     Dosage: DRUG REPORTED AS: FELODIL.
     Route: 048
  6. ARANESP [Concomitant]
     Dates: start: 20071201
  7. SANDIMMUNE [Concomitant]
  8. PREDNISONE TAB [Concomitant]
     Dosage: DRUG REPORTED AS: PREDNISON.
     Route: 048
  9. COZAAR [Concomitant]
     Dosage: DRUG REPORTED AS: COSAAR FORTE.
     Route: 048
  10. MIMPARA [Concomitant]
  11. CALCIUM CARBONATE [Concomitant]
     Route: 048
  12. FOLIC ACID [Concomitant]
     Route: 048

REACTIONS (2)
  - GASTROINTESTINAL INFECTION [None]
  - HYPERTENSION [None]
